FAERS Safety Report 6052854-3 (Version None)
Quarter: 2009Q1

REPORT INFORMATION
  Report Type: 
  Country: None (occurrence: None)
  Receive Date: 20090127
  Receipt Date: 20090115
  Transmission Date: 20090719
  Serious: Yes (Other)
  Sender: FDA-Public Use
  Company Number: PHHY2009JP00830

PATIENT

DRUGS (2)
  1. TOFRANIL [Suspect]
     Route: 048
  2. AMOXAN [Concomitant]
     Route: 048

REACTIONS (1)
  - CARDIAC FAILURE [None]
